FAERS Safety Report 12646920 (Version 1)
Quarter: 2016Q3

REPORT INFORMATION
  Report Type: Spontaneous
  Country: RU (occurrence: RU)
  Receive Date: 20160812
  Receipt Date: 20160812
  Transmission Date: 20161109
  Serious: Yes (Life-Threatening, Hospitalization)
  Sender: FDA-Public Use
  Company Number: RU-ASTRAZENECA-2016SE85534

PATIENT
  Age: 36 Year
  Sex: Male
  Weight: 84 kg

DRUGS (7)
  1. OMEZ [Concomitant]
     Active Substance: OMEPRAZOLE
  2. PRESTARIUM A [Concomitant]
     Active Substance: PERINDOPRIL ARGININE
  3. AMLODIPINE [Concomitant]
     Active Substance: AMLODIPINE BESYLATE
  4. MEXIDOL [Concomitant]
  5. ATORVASTATIN [Concomitant]
     Active Substance: ATORVASTATIN
  6. THROMBO ASS [Concomitant]
     Active Substance: ASPIRIN
  7. BRILINTA [Suspect]
     Active Substance: TICAGRELOR
     Indication: MYOCARDIAL INFARCTION
     Route: 048
     Dates: start: 201601

REACTIONS (2)
  - Device occlusion [Recovered/Resolved]
  - Myocardial infarction [Unknown]

NARRATIVE: CASE EVENT DATE: 201607
